FAERS Safety Report 9106396 (Version 3)
Quarter: 2013Q1

REPORT INFORMATION
  Report Type: Report from Study
  Country: FR (occurrence: FR)
  Receive Date: 20130221
  Receipt Date: 20130306
  Transmission Date: 20140127
  Serious: Yes (Hospitalization)
  Sender: FDA-Public Use
  Company Number: FR-ROCHE-1189454

PATIENT
  Age: 8 Year
  Sex: Male

DRUGS (28)
  1. RITUXIMAB [Suspect]
     Indication: BURKITT^S LEUKAEMIA
     Route: 042
     Dates: start: 20121014, end: 20121014
  2. RITUXIMAB [Suspect]
     Indication: B-CELL LYMPHOMA
     Route: 042
     Dates: start: 20121016, end: 20121016
  3. RITUXIMAB [Suspect]
     Dosage: CYCLE 3.
     Route: 042
     Dates: start: 20121101, end: 20121103
  4. RITUXIMAB [Suspect]
     Route: 042
     Dates: start: 20121119, end: 20121119
  5. METHOTREXATE [Suspect]
     Indication: BURKITT^S LEUKAEMIA
     Route: 042
     Dates: start: 20121016, end: 20121016
  6. METHOTREXATE [Suspect]
     Dosage: CYCLE 3.
     Route: 042
     Dates: start: 20121103, end: 20121103
  7. METHOTREXATE [Suspect]
     Route: 042
     Dates: start: 20121231, end: 20121231
  8. VINCRISTINE SULFATE [Suspect]
     Indication: BURKITT^S LEUKAEMIA
     Route: 042
     Dates: start: 20121016, end: 20121016
  9. VINCRISTINE SULFATE [Suspect]
     Route: 042
     Dates: start: 20121231, end: 20121231
  10. DOXORUBICIN [Suspect]
     Indication: BURKITT^S LEUKAEMIA
     Route: 042
     Dates: start: 20121017, end: 20121017
  11. DOXORUBICIN [Suspect]
     Dosage: CYCLE 3.
     Route: 042
     Dates: start: 20121104, end: 20121104
  12. DOXORUBICIN [Suspect]
     Route: 042
     Dates: start: 20130101, end: 20130101
  13. CYCLOPHOSPHAMIDE [Suspect]
     Indication: BURKITT^S LEUKAEMIA
     Route: 042
     Dates: start: 20121017, end: 20121020
  14. CYCLOPHOSPHAMIDE [Suspect]
     Route: 042
     Dates: start: 20121104, end: 20121107
  15. CYCLOPHOSPHAMIDE [Suspect]
     Route: 042
     Dates: start: 20130101, end: 20130102
  16. CYTARABINE [Suspect]
     Indication: BURKITT^S LEUKAEMIA
     Route: 042
     Dates: start: 20121120, end: 20121124
  17. CYTARABINE [Suspect]
     Route: 042
     Dates: start: 20121120, end: 20121123
  18. ETOPOSIDE [Suspect]
     Indication: BURKITT^S LEUKAEMIA
     Route: 042
     Dates: start: 20121120, end: 20121123
  19. ATARAX [Concomitant]
     Route: 065
     Dates: start: 20121024, end: 20121025
  20. NALBUPHINE [Concomitant]
     Route: 042
     Dates: start: 20121023, end: 20121024
  21. NALBUPHINE [Concomitant]
     Route: 065
     Dates: start: 20121111, end: 20121113
  22. NALBUPHINE [Concomitant]
     Route: 042
     Dates: start: 20121231
  23. MORPHINE [Concomitant]
     Route: 065
     Dates: start: 20121024
  24. PREDNISOLONE [Concomitant]
     Route: 065
     Dates: start: 20121009
  25. PREDNISOLONE [Concomitant]
     Route: 065
     Dates: start: 20121016, end: 20121020
  26. FOLINIC ACID [Concomitant]
     Route: 065
     Dates: start: 20121017, end: 20121019
  27. ONDANSETRON [Concomitant]
     Route: 042
     Dates: start: 20121231, end: 20130103
  28. LEVOFOLINATE [Concomitant]
     Route: 042
     Dates: start: 20130101, end: 20130103

REACTIONS (7)
  - Neutropenic colitis [Recovered/Resolved]
  - Staphylococcal sepsis [Recovered/Resolved]
  - Febrile bone marrow aplasia [Recovered/Resolved]
  - Mucosal inflammation [Recovered/Resolved]
  - Febrile neutropenia [Recovered/Resolved]
  - Abdominal pain [Recovered/Resolved]
  - Febrile neutropenia [Recovered/Resolved]
